FAERS Safety Report 7799715-7 (Version None)
Quarter: 2011Q4

REPORT INFORMATION
  Report Type: 
  Country: None (occurrence: None)
  Receive Date: 20111006
  Receipt Date: 20110927
  Transmission Date: 20120403
  Serious: Yes (Hospitalization)
  Sender: FDA-Public Use
  Company Number: PHEH2011US05269

PATIENT
  Sex: Female

DRUGS (12)
  1. AMBIEN [Concomitant]
     Dosage: UNK UKN, UNK
  2. GILENYA [Suspect]
     Indication: MULTIPLE SCLEROSIS
     Dosage: 0.5 MG, DAILY
     Route: 048
     Dates: start: 20110826
  3. ASPIRIN [Concomitant]
     Dosage: UNK UKN, UNK
  4. TYLENOL-500 [Concomitant]
     Dosage: UNK UKN, PRN
  5. NORCO [Concomitant]
     Dosage: UNK UKN, PRN
  6. ARICEPT [Concomitant]
     Dosage: UNK UKN, UNK
  7. NAMENDA [Concomitant]
     Dosage: UNK UKN, UNK
  8. SERTRALINE HYDROCHLORIDE [Concomitant]
     Dosage: UNK UKN, UNK
  9. IMODIUM [Concomitant]
     Dosage: UNK UKN, PRN
  10. NAPROXEN [Concomitant]
     Dosage: UNK UKN, PRN
  11. CYANOCOBALAMIN [Concomitant]
     Dosage: UNK UKN, UNK
  12. LOMOTIL [Concomitant]
     Dosage: UNK UKN, PRN

REACTIONS (1)
  - URINARY TRACT INFECTION [None]
